FAERS Safety Report 6655132-4 (Version None)
Quarter: 2010Q1

REPORT INFORMATION
  Report Type: 
  Country: None (occurrence: None)
  Receive Date: 20100317
  Receipt Date: 20100202
  Transmission Date: 20100710
  Serious: No
  Sender: FDA-Public Use
  Company Number: DSA_42523_2010

PATIENT
  Sex: Female

DRUGS (5)
  1. XENAZINE [Suspect]
     Indication: HUNTINGTON'S CHOREA
     Dosage: 12.5 MG, ONCE AT BEDTIME ORAL
     Route: 048
     Dates: start: 20100201
  2. ATENOLOL [Concomitant]
  3. AMLODIPINE [Concomitant]
  4. PREVACID [Concomitant]
  5. ASPIRIN [Concomitant]

REACTIONS (2)
  - INSOMNIA [None]
  - RESTLESSNESS [None]
